FAERS Safety Report 10144137 (Version 1)
Quarter: 2014Q2

REPORT INFORMATION
  Report Type: Spontaneous
  Country: FR (occurrence: FR)
  Receive Date: 20140430
  Receipt Date: 20140430
  Transmission Date: 20141212
  Serious: Yes (Death, Hospitalization, Other)
  Sender: FDA-Public Use
  Company Number: FR-BRISTOL-MYERS SQUIBB COMPANY-20664793

PATIENT
  Age: 89 Year
  Sex: Male

DRUGS (1)
  1. COUMADIN [Suspect]
     Route: 048

REACTIONS (8)
  - Death [Fatal]
  - Haemorrhage intracranial [Unknown]
  - Fall [Unknown]
  - Rhabdomyolysis [Unknown]
  - Renal failure [Unknown]
  - Orthostatic hypotension [Unknown]
  - Vitamin D deficiency [Recovered/Resolved]
  - Hepatocellular injury [Unknown]
